FAERS Safety Report 6891481-2 (Version None)
Quarter: 2010Q3

REPORT INFORMATION
  Report Type: 
  Country: None (occurrence: None)
  Receive Date: 20100731
  Receipt Date: 20070619
  Transmission Date: 20110219
  Serious: No
  Sender: FDA-Public Use
  Company Number: US-PFIZER INC-2007053481

PATIENT
  Sex: Male
  Weight: 86.18 kg

DRUGS (10)
  1. FLAGYL [Interacting]
     Indication: INFECTION
     Route: 048
     Dates: start: 20030101, end: 20030101
  2. GABITRIL [Suspect]
     Indication: COMPLEX PARTIAL SEIZURES
     Route: 048
     Dates: start: 20020101
  3. LEVAQUIN [Suspect]
     Indication: INFECTION
     Route: 048
     Dates: start: 20030101, end: 20030101
  4. ZOCOR [Concomitant]
  5. LISINOPRIL [Concomitant]
  6. TIAZAC [Concomitant]
  7. ZANTAC [Concomitant]
  8. ASPIRIN [Concomitant]
  9. VITAMINS [Concomitant]
  10. GLUCOSAMINE [Concomitant]

REACTIONS (4)
  - ABNORMAL BEHAVIOUR [None]
  - AMNESIA [None]
  - CONFUSIONAL STATE [None]
  - DRUG INTERACTION [None]
